FAERS Safety Report 7640770-2 (Version None)
Quarter: 2011Q3

REPORT INFORMATION
  Report Type: 
  Country: None (occurrence: None)
  Receive Date: 20110728
  Receipt Date: 20110714
  Transmission Date: 20111222
  Serious: Yes (Other)
  Sender: FDA-Public Use
  Company Number: CA-ELI_LILLY_AND_COMPANY-CA201107003676

PATIENT
  Sex: Male

DRUGS (20)
  1. ASPIRIN [Concomitant]
  2. ZYPREXA ZYDIS [Suspect]
     Indication: SCHIZOPHRENIA
     Dosage: 10 MG, BID
  3. ZYPREXA ZYDIS [Suspect]
     Dosage: 5 MG, QD
  4. CYMBALTA [Concomitant]
  5. FLUANXOL [Concomitant]
  6. EFFEXOR [Concomitant]
  7. CELEXA [Concomitant]
  8. LITHIUM CARBONATE [Concomitant]
  9. CLOZAPINE [Concomitant]
  10. LIPITOR [Concomitant]
  11. PROPRANOLOL [Concomitant]
  12. ZOLOFT [Concomitant]
  13. WELLBUTRIN [Concomitant]
  14. SEROQUEL [Concomitant]
  15. IMOVANE [Concomitant]
  16. ZYPREXA ZYDIS [Suspect]
     Dosage: 5 MG, PRN
  17. ZYPREXA ZYDIS [Suspect]
     Dosage: 10 MG, QD
  18. RISPERIDONE [Concomitant]
  19. LOXAPINE HCL [Concomitant]
  20. LAMOTRIGINE [Concomitant]

REACTIONS (5)
  - WEIGHT INCREASED [None]
  - DIABETES MELLITUS [None]
  - CATARACT NUCLEAR [None]
  - SLEEP APNOEA SYNDROME [None]
  - DIABETIC RETINOPATHY [None]
